FAERS Safety Report 24873507 (Version 2)
Quarter: 2025Q1

REPORT INFORMATION
  Report Type: Spontaneous
  Country: IL (occurrence: IL)
  Receive Date: 20250122
  Receipt Date: 20250127
  Transmission Date: 20250409
  Serious: Yes (Death, Hospitalization)
  Sender: GENMAB
  Company Number: IL-ABBVIE-6096787

PATIENT
  Age: 47 Year
  Sex: Male

DRUGS (1)
  1. EPCORITAMAB [Suspect]
     Active Substance: EPCORITAMAB
     Indication: Diffuse large B-cell lymphoma
     Route: 058

REACTIONS (3)
  - Gastrointestinal disorder [Fatal]
  - Gastrointestinal perforation [Fatal]
  - Peritonitis [Unknown]
